FAERS Safety Report 17957197 (Version 1)
Quarter: 2020Q2

REPORT INFORMATION
  Report Type: Spontaneous
  Country: FR (occurrence: FR)
  Receive Date: 20200629
  Receipt Date: 20200629
  Transmission Date: 20200714
  Serious: Yes (Life-Threatening)
  Sender: FDA-Public Use
  Company Number: FR-PFIZER INC-2020247416

PATIENT
  Age: 64 Year
  Sex: Female
  Weight: 58.5 kg

DRUGS (3)
  1. ATARAX [Suspect]
     Active Substance: HYDROXYZINE HYDROCHLORIDE
     Dosage: 250 MG, SINGLE
     Route: 048
     Dates: start: 20200601
  2. IMOVANE [Suspect]
     Active Substance: ZOPICLONE
     Dosage: 105 MG
     Route: 048
     Dates: start: 20200601
  3. XANAX [Suspect]
     Active Substance: ALPRAZOLAM
     Dosage: 4 MG, SINGLE
     Route: 048
     Dates: start: 20200601

REACTIONS (3)
  - Hypovolaemic shock [Recovered/Resolved]
  - Coma [Recovered/Resolved]
  - Toxicity to various agents [Recovered/Resolved]

NARRATIVE: CASE EVENT DATE: 20200601
